FAERS Safety Report 19379471 (Version 3)
Quarter: 2023Q4

REPORT INFORMATION
  Report Type: Other
  Country: DE (occurrence: None)
  Receive Date: 20210607
  Receipt Date: 20231127
  Transmission Date: 20240110
  Serious: Yes (Other)
  Sender: FDA-Public Use
  Company Number: DE-SAPTALIS PHARMACEUTICALS,LLC-000084

PATIENT
  Sex: Male

DRUGS (16)
  1. TRIAMCINOLONE ACETONIDE [Suspect]
     Active Substance: TRIAMCINOLONE ACETONIDE
     Indication: Multiple sclerosis
     Dosage: CYCLE 21, DOSE 4, 40 MG INTRATHECAL INJECTIONS
     Route: 037
  2. TRIAMCINOLONE ACETONIDE [Suspect]
     Active Substance: TRIAMCINOLONE ACETONIDE
     Indication: Multiple sclerosis
     Dosage: CYCLE 18, FIRST DOSE, 80 MG INTRATHECAL INJECTIONS
     Route: 037
  3. TRIAMCINOLONE ACETONIDE [Suspect]
     Active Substance: TRIAMCINOLONE ACETONIDE
     Indication: Multiple sclerosis
     Dosage: CYCLE 19, FOURTH DOSE, 80 MG INTRATHECAL INJECTIONS
     Route: 037
  4. TRIAMCINOLONE ACETONIDE [Suspect]
     Active Substance: TRIAMCINOLONE ACETONIDE
     Indication: Multiple sclerosis
     Dosage: CYCLE 20, FIRST DOSE, 80 MG INTRATHECAL INJECTIONS
     Route: 037
  5. TRIAMCINOLONE ACETONIDE [Suspect]
     Active Substance: TRIAMCINOLONE ACETONIDE
     Indication: Multiple sclerosis
     Dosage: CYCLE 20, SECOND DOSE, 80 MG INTRATHECAL INJECTIONS
     Route: 037
  6. TRIAMCINOLONE ACETONIDE [Suspect]
     Active Substance: TRIAMCINOLONE ACETONIDE
     Indication: Multiple sclerosis
     Dosage: CYCLE 20, THIRD DOSE, 80 MG INTRATHECAL INJECTIONS
     Route: 037
  7. TRIAMCINOLONE ACETONIDE [Suspect]
     Active Substance: TRIAMCINOLONE ACETONIDE
     Indication: Multiple sclerosis
     Dosage: CYCLE 20, FOURTH DOSE, 80 MG INTRATHECAL INJECTIONS
     Route: 037
  8. TRIAMCINOLONE ACETONIDE [Suspect]
     Active Substance: TRIAMCINOLONE ACETONIDE
     Indication: Multiple sclerosis
     Dosage: CYCLE 21, FIRST DOSE, 80 MG INTRATHECAL INJECTIONS
     Route: 037
  9. TRIAMCINOLONE ACETONIDE [Suspect]
     Active Substance: TRIAMCINOLONE ACETONIDE
     Indication: Multiple sclerosis
     Dosage: CYCLE 21, SECOND DOSE, 80 MG INTRATHECAL INJECTIONS
     Route: 037
  10. TRIAMCINOLONE ACETONIDE [Suspect]
     Active Substance: TRIAMCINOLONE ACETONIDE
     Indication: Multiple sclerosis
     Dosage: CYCLE 21, THIRD DOSE, 80 MG INTRATHECAL INJECTIONS
     Route: 037
  11. TRIAMCINOLONE ACETONIDE [Suspect]
     Active Substance: TRIAMCINOLONE ACETONIDE
     Indication: Multiple sclerosis
     Dosage: CYCLE 18, SECOND DOSE, 80 MG INTRATHECAL INJECTIONS
     Route: 037
  12. TRIAMCINOLONE ACETONIDE [Suspect]
     Active Substance: TRIAMCINOLONE ACETONIDE
     Indication: Multiple sclerosis
     Dosage: CYCLE 18, THIRD DOSE, 80 MG INTRATHECAL INJECTIONS
     Route: 037
  13. TRIAMCINOLONE ACETONIDE [Suspect]
     Active Substance: TRIAMCINOLONE ACETONIDE
     Indication: Multiple sclerosis
     Dosage: CYCLE 18, FOURTH DOSE, 80 MG INTRATHECAL INJECTIONS
     Route: 037
  14. TRIAMCINOLONE ACETONIDE [Suspect]
     Active Substance: TRIAMCINOLONE ACETONIDE
     Indication: Multiple sclerosis
     Dosage: CYCLE 19, FIRST DOSE, 80 MG INTRATHECAL INJECTIONS
     Route: 037
  15. TRIAMCINOLONE ACETONIDE [Suspect]
     Active Substance: TRIAMCINOLONE ACETONIDE
     Indication: Multiple sclerosis
     Dosage: CYCLE 19, SECOND DOSE, 80 MG INTRATHECAL INJECTIONS
     Route: 037
  16. TRIAMCINOLONE ACETONIDE [Suspect]
     Active Substance: TRIAMCINOLONE ACETONIDE
     Indication: Multiple sclerosis
     Dosage: CYCLE 19, THIRD DOSE, 80 MG INTRATHECAL INJECTIONS
     Route: 037

REACTIONS (2)
  - Hypothalamic pituitary adrenal axis suppression [Unknown]
  - Off label use [Unknown]
